FAERS Safety Report 5659665-9 (Version None)
Quarter: 2008Q1

REPORT INFORMATION
  Report Type: 
  Country: None (occurrence: None)
  Receive Date: 20080311
  Receipt Date: 20080304
  Transmission Date: 20080703
  Serious: Yes (Other)
  Sender: FDA-Public Use
  Company Number: US-JNJFOC-20080301338

PATIENT
  Sex: Female
  Weight: 78.47 kg

DRUGS (2)
  1. LEVAQUIN [Suspect]
     Indication: EAR INFECTION
     Route: 048
  2. ANTACID TAB [Concomitant]
     Indication: DYSPEPSIA
     Route: 065

REACTIONS (4)
  - ATRIAL TACHYCARDIA [None]
  - DIZZINESS [None]
  - DYSPEPSIA [None]
  - OCULAR VASCULAR DISORDER [None]
